FAERS Safety Report 24022275 (Version 2)
Quarter: 2024Q2

REPORT INFORMATION
  Report Type: Spontaneous
  Country: CN (occurrence: CN)
  Receive Date: 20240627
  Receipt Date: 20240627
  Transmission Date: 20240715
  Serious: No
  Sender: FDA-Public Use
  Company Number: CN-ROCHE-3533142

PATIENT
  Age: 78 Year
  Sex: Female

DRUGS (2)
  1. ROZLYTREK [Suspect]
     Active Substance: ENTRECTINIB
     Indication: Lung neoplasm malignant
     Dosage: 1 CAPSULE AT 8:00 AM AND 2 CAPSULES AT 9:30 AM
     Route: 048
     Dates: start: 20240323
  2. ROZLYTREK [Suspect]
     Active Substance: ENTRECTINIB
     Dosage: DF MEANS CAPSULES
     Route: 048
     Dates: start: 20240324

REACTIONS (3)
  - Fatigue [Unknown]
  - Asthenia [Unknown]
  - Product prescribing error [Unknown]

NARRATIVE: CASE EVENT DATE: 20240323
